FAERS Safety Report 8400857-3 (Version None)
Quarter: 2012Q2

REPORT INFORMATION
  Report Type: 
  Country: None (occurrence: None)
  Receive Date: 20120601
  Receipt Date: 20120523
  Transmission Date: 20120825
  Serious: Yes (Death, Hospitalization)
  Sender: FDA-Public Use
  Company Number: FR-BRISTOL-MYERS SQUIBB COMPANY-15218134

PATIENT
  Age: 84 Year
  Sex: Male

DRUGS (9)
  1. BISOPROLOL FUMARATE [Concomitant]
  2. PENTOXIFYLLINE [Concomitant]
  3. VASTAREL [Concomitant]
  4. OMIX [Concomitant]
  5. GLUCOPHAGE [Suspect]
     Indication: TYPE 2 DIABETES MELLITUS
     Route: 048
     Dates: end: 20100620
  6. SERC [Concomitant]
  7. PERMIXON [Concomitant]
  8. RAMIPRIL [Concomitant]
  9. DIAMICRON [Concomitant]

REACTIONS (8)
  - DIARRHOEA [None]
  - VOMITING [None]
  - ASTHENIA [None]
  - LACTIC ACIDOSIS [None]
  - RENAL FAILURE ACUTE [None]
  - HYPERKALAEMIA [None]
  - INTERNATIONAL NORMALISED RATIO INCREASED [None]
  - BACK PAIN [None]
